FAERS Safety Report 22238413 (Version 1)
Quarter: 2023Q2

REPORT INFORMATION
  Report Type: Other
  Country: CA (occurrence: CA)
  Receive Date: 20230421
  Receipt Date: 20230421
  Transmission Date: 20230722
  Serious: Yes (Hospitalization, Other)
  Sender: FDA-Public Use
  Company Number: CA-CELLTRION INC.-2023CA008178

PATIENT

DRUGS (16)
  1. RITUXIMAB [Suspect]
     Active Substance: RITUXIMAB
     Indication: Polymyositis
     Dosage: 1000.0 MILLIGRAM
     Route: 041
  2. RITUXIMAB [Suspect]
     Active Substance: RITUXIMAB
     Indication: Myositis
     Dosage: UNK
     Route: 065
  3. ASPIRIN [Concomitant]
     Active Substance: ASPIRIN
     Route: 065
  4. CALCIUM [Concomitant]
     Active Substance: CALCIUM
  5. CLOPIDOGREL [Concomitant]
     Active Substance: CLOPIDOGREL BISULFATE
  6. EMPAGLIFLOZIN [Concomitant]
     Active Substance: EMPAGLIFLOZIN
  7. EZETIMIBE [Concomitant]
     Active Substance: EZETIMIBE
  8. FOLIC ACID [Concomitant]
     Active Substance: FOLIC ACID
  9. METFORMIN [Concomitant]
     Active Substance: METFORMIN HYDROCHLORIDE
  10. METHOTREXATE [Concomitant]
     Active Substance: METHOTREXATE
     Route: 048
  11. METOPROLOL [Concomitant]
     Active Substance: METOPROLOL
  12. MYCOPHENOLATE MOFETIL [Concomitant]
     Active Substance: MYCOPHENOLATE MOFETIL
  13. NITROGLYCERIN [Concomitant]
     Active Substance: NITROGLYCERIN
  14. PREDNISONE [Concomitant]
     Active Substance: PREDNISONE
  15. RISEDRONATE SODIUM [Concomitant]
     Active Substance: RISEDRONATE SODIUM
  16. RIVAROXABAN [Concomitant]
     Active Substance: RIVAROXABAN
     Route: 065

REACTIONS (6)
  - COVID-19 [Recovered/Resolved]
  - Chills [Recovered/Resolved]
  - Nasopharyngitis [Recovered/Resolved]
  - Pneumonia [Recovered/Resolved]
  - Off label use [Recovered/Resolved]
  - Off label use [Unknown]
